FAERS Safety Report 5503864-3 (Version None)
Quarter: 2007Q4

REPORT INFORMATION
  Report Type: 
  Country: None (occurrence: None)
  Receive Date: 20071030
  Receipt Date: 20071016
  Transmission Date: 20080405
  Serious: Yes (Hospitalization)
  Sender: FDA-Public Use
  Company Number: 2007PV033584

PATIENT
  Age: 52 Year
  Sex: Female
  Weight: 112.0385 kg

DRUGS (7)
  1. SYMLIN [Suspect]
     Indication: TYPE 2 DIABETES MELLITUS
     Dosage: 60 MCG;TID;SC ; 60 MCG;QD;SC
     Route: 058
     Dates: start: 20070425, end: 20070501
  2. SYMLIN [Suspect]
     Indication: TYPE 2 DIABETES MELLITUS
     Dosage: 60 MCG;TID;SC ; 60 MCG;QD;SC
     Route: 058
     Dates: start: 20070501, end: 20070807
  3. LIPITOR [Concomitant]
  4. HUMALOG [Concomitant]
  5. METFORMIN HCL [Concomitant]
  6. VITAMINS [Concomitant]
  7. CALCIUM [Concomitant]

REACTIONS (1)
  - PANCREATITIS [None]
